FAERS Safety Report 8844848 (Version 2)
Quarter: 2012Q4

REPORT INFORMATION
  Report Type: 
  Country: US (occurrence: US)
  Receive Date: 20121017
  Receipt Date: 20121105
  Transmission Date: 20130627
  Serious: Yes (Other)
  Sender: FDA-Public Use
  Company Number: US-PFIZER INC-2012258032

PATIENT
  Age: 79 Year
  Sex: Female
  Weight: 58.96 kg

DRUGS (4)
  1. LYRICA [Suspect]
     Indication: NERVE PAIN
     Dosage: 25 mg, 1-2 capsules 3x/day
     Dates: start: 20120801
  2. LYRICA [Suspect]
     Indication: LUMBAR RADICULOPATHY
     Dosage: 25 mg, 3x/day
     Route: 048
     Dates: start: 20120812
  3. LISINOPRIL [Concomitant]
     Indication: BLOOD PRESSURE HIGH
     Dosage: 10 mg, 1x/day
     Route: 048
  4. METOPROLOL [Concomitant]
     Indication: BLOOD PRESSURE HIGH
     Dosage: 50 mg, 2x/day
     Route: 048

REACTIONS (1)
  - Insomnia [Not Recovered/Not Resolved]
